FAERS Safety Report 15857065 (Version 1)
Quarter: 2019Q1

REPORT INFORMATION
  Report Type: Spontaneous
  Country: US (occurrence: US)
  Receive Date: 20190122
  Receipt Date: 20190122
  Transmission Date: 20190417
  Serious: Yes (Life-Threatening, Hospitalization)
  Sender: FDA-Public Use
  Company Number: None

PATIENT
  Age: 66 Year
  Sex: Female
  Weight: 108 kg

DRUGS (3)
  1. VITAMIN D [Concomitant]
     Active Substance: CHOLECALCIFEROL
  2. MULTI-VITAMIN [Concomitant]
     Active Substance: .ALPHA.-TOCOPHEROL ACETATE, DL-\ASCORBIC ACID\CYANOCOBALAMIN\FLUORIDE ION\FOLIC ACID\NIACIN\PYRIDOXINE\RIBOFLAVIN\THIAMINE\VITAMIN A\VITAMIN D
  3. CLINDAMYCIN ANTIBIOTIC [Suspect]
     Active Substance: CLINDAMYCIN
     Indication: SIALOADENITIS
     Route: 048
     Dates: start: 20160731, end: 20170801

REACTIONS (13)
  - Blood blister [None]
  - Dyspnoea [None]
  - Toxic epidermal necrolysis [None]
  - Urticaria [None]
  - Myocardial infarction [None]
  - Gait disturbance [None]
  - Renal disorder [None]
  - Cerebral disorder [None]
  - Pain [None]
  - Pyrexia [None]
  - Disorientation [None]
  - Multiple organ dysfunction syndrome [None]
  - Cardiac disorder [None]

NARRATIVE: CASE EVENT DATE: 20170803
